FAERS Safety Report 22140924 (Version 1)
Quarter: 2023Q1

REPORT INFORMATION
  Report Type: Spontaneous
  Country: TH (occurrence: TH)
  Receive Date: 20230327
  Receipt Date: 20230327
  Transmission Date: 20230417
  Serious: Yes (Hospitalization)
  Sender: FDA-Public Use
  Company Number: TH-MYLANLABS-2023M1032771

PATIENT
  Age: 45 Year
  Sex: Male

DRUGS (6)
  1. VANCOMYCIN [Suspect]
     Active Substance: VANCOMYCIN
     Indication: Keratitis
     Dosage: UNK, QH (EYEDROP)
     Route: 047
  2. VANCOMYCIN [Suspect]
     Active Substance: VANCOMYCIN
     Indication: Burkholderia pseudomallei infection
  3. GENTAMICIN [Suspect]
     Active Substance: GENTAMICIN
     Indication: Keratitis
     Dosage: UNK, QH (EYEDROP)
     Route: 047
  4. GENTAMICIN [Suspect]
     Active Substance: GENTAMICIN
     Indication: Burkholderia pseudomallei infection
  5. GENTAMICIN [Suspect]
     Active Substance: GENTAMICIN
     Indication: Keratitis
     Dosage: 14 MILLIGRAM PER MILLILITRE, QH
     Route: 061
  6. GENTAMICIN [Suspect]
     Active Substance: GENTAMICIN
     Indication: Burkholderia pseudomallei infection

REACTIONS (1)
  - Drug ineffective [Unknown]
